FAERS Safety Report 10960674 (Version 1)
Quarter: 2015Q1

REPORT INFORMATION
  Report Type: Spontaneous
  Country: BR (occurrence: BR)
  Receive Date: 20150327
  Receipt Date: 20150327
  Transmission Date: 20150721
  Serious: Yes (Other)
  Sender: FDA-Public Use
  Company Number: BR-PFIZER INC-2015102049

PATIENT
  Age: 78 Year
  Sex: Female
  Weight: 56 kg

DRUGS (5)
  1. AAS [Concomitant]
     Active Substance: ASPIRIN
     Indication: BLOOD DISORDER
     Dosage: 1 TABLET PER DAY
  2. CARVEDILOL. [Concomitant]
     Active Substance: CARVEDILOL
     Indication: CARDIAC DISORDER
     Dosage: 1 TABLET PER DAY
  3. DETRUSITOL LA [Suspect]
     Active Substance: TOLTERODINE TARTRATE
     Indication: URINARY INCONTINENCE
     Dosage: 1 CAPSULE OF 4 MG, DAILY
     Route: 048
     Dates: end: 201412
  4. AMLODIPINE [Concomitant]
     Active Substance: AMLODIPINE BESYLATE
     Indication: HYPERTENSION
     Dosage: 1 TABLET PER DAY
  5. ENALAPRIL [Concomitant]
     Active Substance: ENALAPRIL
     Indication: HYPERTENSION
     Dosage: 2 TABLETS PER DAY

REACTIONS (2)
  - Fall [Unknown]
  - Joint dislocation [Unknown]

NARRATIVE: CASE EVENT DATE: 20141202
